FAERS Safety Report 7951391-6 (Version None)
Quarter: 2011Q4

REPORT INFORMATION
  Report Type: 
  Country: None (occurrence: None)
  Receive Date: 20111129
  Receipt Date: 20111117
  Transmission Date: 20120403
  Serious: Yes (Death)
  Sender: FDA-Public Use
  Company Number: B0735956B

PATIENT
  Sex: Female
  Weight: 43.4092 kg

DRUGS (1)
  1. ARZERRA INJECTION (OFATUMUMAB) [Suspect]
     Indication: B-CELL LYMPHOMA
     Dosage: 1000 ML / INTRAVENOUS
     Route: 042
     Dates: start: 20110615, end: 20110712

REACTIONS (11)
  - DYSPNOEA [None]
  - SEPSIS [None]
  - PALPITATIONS [None]
  - SUPRAVENTRICULAR TACHYCARDIA [None]
  - CONSTIPATION [None]
  - VENTRICULAR TACHYCARDIA [None]
  - NEOPLASM PROGRESSION [None]
  - CARDIAC ARREST [None]
  - DIFFUSE LARGE B-CELL LYMPHOMA [None]
  - DEHYDRATION [None]
  - BRADYCARDIA [None]
